FAERS Safety Report 5946454-0 (Version None)
Quarter: 2008Q4

REPORT INFORMATION
  Report Type: 
  Country: None (occurrence: None)
  Receive Date: 20081110
  Receipt Date: 20081104
  Transmission Date: 20090506
  Serious: Yes (Other)
  Sender: FDA-Public Use
  Company Number: US-BAYER-200811898BCC

PATIENT
  Age: 17 Year
  Sex: Female
  Weight: 49 kg

DRUGS (3)
  1. ALEVE [Suspect]
     Indication: MIGRAINE
     Dosage: UNIT DOSE: 220 MG
     Route: 048
     Dates: end: 20080426
  2. ALEVE [Suspect]
     Indication: MIGRAINE
     Dosage: AS USED: 440 MG  UNIT DOSE: 20 MG
     Route: 048
  3. ALEVE [Suspect]
     Indication: MIGRAINE
     Dosage: UNIT DOSE: 220 MG
     Route: 048
     Dates: start: 20080414, end: 20080414

REACTIONS (6)
  - BLINDNESS UNILATERAL [None]
  - FOOD INTOLERANCE [None]
  - HEMIPLEGIA [None]
  - HYPOAESTHESIA [None]
  - PARAESTHESIA [None]
  - VOMITING [None]
